FAERS Safety Report 4420614-2 (Version None)
Quarter: 2004Q3

REPORT INFORMATION
  Report Type: 
  Country: None (occurrence: None)
  Receive Date: 20040804
  Receipt Date: 20040722
  Transmission Date: 20050211
  Serious: Yes (Hospitalization)
  Sender: FDA-Public Use
  Company Number: FR-JNJFOC-20040706079

PATIENT
  Age: 80 Year
  Sex: Female

DRUGS (9)
  1. TOPALGIC       (TRAMADOL HYDROCHLORIDE) [Suspect]
     Dosage: 2 IN 1 DAY, ORAL
     Route: 048
     Dates: start: 20040517
  2. ALTIM (CORTIVAZOL) [Suspect]
     Dosage: INTRA-ARTICULAR
     Route: 014
     Dates: start: 20040528, end: 20040528
  3. PREDNISONE TAB [Suspect]
     Dosage: ORAL
     Route: 048
     Dates: start: 20040521, end: 20040528
  4. LOVENOX [Suspect]
     Dosage: 1 IN 1 DAY, SUBCUTANEOUS
     Route: 058
     Dates: start: 20040517, end: 20040603
  5. NAPROXEN SODIUM [Suspect]
     Dosage: 1100 MG, 1 IN 1 DAY, ORAL
     Route: 048
     Dates: start: 20040517, end: 20040528
  6. OMEPRAZOLE [Suspect]
     Dosage: 20 MG, 1 IN 1 DAY, ORAL
     Route: 048
     Dates: start: 20040517
  7. MIACALCIN [Suspect]
     Dosage: 1 IN 1 DAY, SUBCUTANEOUS
     Route: 058
     Dates: start: 20040519, end: 20040603
  8. ISORYTHM      (DISOPYRAMIDE) [Concomitant]
  9. STILNOX (ZOLPIDEM) [Concomitant]

REACTIONS (6)
  - DRUG INTERACTION [None]
  - PRURITUS [None]
  - PURPURA [None]
  - RASH ERYTHEMATOUS [None]
  - RASH PAPULAR [None]
  - TOXIC SKIN ERUPTION [None]
